FAERS Safety Report 8876215 (Version 1)
Quarter: 2012Q4

REPORT INFORMATION
  Report Type: 
  Country: US (occurrence: US)
  Receive Date: 20121023
  Receipt Date: 20121023
  Transmission Date: 20130627
  Serious: Yes (Hospitalization)
  Sender: FDA-Public Use
  Company Number: US-MYLANLABS-2012S1021191

PATIENT
  Age: 23 Month
  Sex: Female

DRUGS (1)
  1. CLONIDINE [Suspect]
     Indication: AUTISM
     Dosage: from a newly filled bottle
     Route: 048

REACTIONS (6)
  - Toxicity to various agents [Recovering/Resolving]
  - Hyperglycaemia [Recovering/Resolving]
  - Product compounding quality issue [Unknown]
  - Lethargy [Recovering/Resolving]
  - Apnoea [Recovering/Resolving]
  - Bradycardia [Recovering/Resolving]
